FAERS Safety Report 5510780-X (Version None)
Quarter: 2007Q4

REPORT INFORMATION
  Report Type: 
  Country: None (occurrence: None)
  Receive Date: 20071108
  Receipt Date: 20071029
  Transmission Date: 20080405
  Serious: Yes (Hospitalization)
  Sender: FDA-Public Use
  Company Number: B0494297A

PATIENT
  Age: 91 Year
  Sex: Male

DRUGS (3)
  1. AUGMENTIN [Suspect]
     Route: 048
     Dates: start: 20070716, end: 20070723
  2. ROCEPHIN [Concomitant]
     Route: 048
     Dates: start: 20070807, end: 20070808
  3. OFLOXACIN [Concomitant]
     Route: 048
     Dates: start: 20070807, end: 20070808

REACTIONS (8)
  - C-REACTIVE PROTEIN INCREASED [None]
  - DRUG ERUPTION [None]
  - EOSINOPHILIA [None]
  - LEUKOPENIA [None]
  - PETECHIAE [None]
  - PLATELET COUNT DECREASED [None]
  - PURPURA [None]
  - THROMBOCYTOPENIA [None]
